FAERS Safety Report 8595293-3 (Version None)
Quarter: 2012Q3

REPORT INFORMATION
  Report Type: 
  Country: None (occurrence: None)
  Receive Date: 20120815
  Receipt Date: 20120809
  Transmission Date: 20120928
  Serious: Yes (Other)
  Sender: FDA-Public Use
  Company Number: US-FRI-1000037624

PATIENT
  Age: 73 Year
  Sex: Male

DRUGS (12)
  1. TEFLARO [Suspect]
     Indication: WOUND INFECTION PSEUDOMONAS
  2. TEFLARO [Suspect]
     Indication: WOUND INFECTION STAPHYLOCOCCAL
  3. COMBIVENT [Concomitant]
  4. MAGNESIUM OXIDE [Concomitant]
     Dosage: 400 MG
  5. SOLU-MEDROL [Concomitant]
     Dosage: 60 MG EVERY 12 HOURS
  6. ASCORBIC ACID [Concomitant]
  7. TEFLARO [Suspect]
     Indication: DECUBITUS ULCER
     Dosage: 600 MG EVERY 12 HOURS
     Route: 042
     Dates: start: 20120731, end: 20120731
  8. TEFLARO [Suspect]
     Indication: ENTEROCOCCAL BACTERAEMIA
  9. DOCUSATE [Concomitant]
     Dosage: 100 MG
  10. TEFLARO [Suspect]
     Indication: ENTEROCOCCAL INFECTION
  11. COREG [Concomitant]
  12. FUROSEMIDE [Concomitant]
     Dosage: 40 MG

REACTIONS (4)
  - STRIDOR [None]
  - ADVERSE DRUG REACTION [None]
  - APNOEA [None]
  - DYSPNOEA [None]
